FAERS Safety Report 5409606-4 (Version None)
Quarter: 2007Q3

REPORT INFORMATION
  Report Type: 
  Country: None (occurrence: None)
  Receive Date: 20070807
  Receipt Date: 20070807
  Transmission Date: 20080115
  Serious: Yes (Other)
  Sender: FDA-Public Use
  Company Number: None

PATIENT
  Age: 57 Year
  Sex: Male
  Weight: 111.1313 kg

DRUGS (1)
  1. PEPCID AC [Suspect]
     Dosage: 1 TABLET 1 TIME PO
     Route: 048
     Dates: start: 20070803, end: 20070804

REACTIONS (1)
  - PALPITATIONS [None]
